FAERS Safety Report 4753779-3 (Version None)
Quarter: 2005Q3

REPORT INFORMATION
  Report Type: 
  Country: None (occurrence: None)
  Receive Date: 20050825
  Receipt Date: 20050809
  Transmission Date: 20060218
  Serious: Yes (Death)
  Sender: FDA-Public Use
  Company Number: 2005S1007575

PATIENT
  Age: 83 Year
  Sex: Female

DRUGS (10)
  1. CLOZAPINE [Suspect]
     Indication: SCHIZOPHRENIA
     Dosage: SEE IMAGE
     Route: 048
     Dates: start: 19991201, end: 20050701
  2. CLOZAPINE [Suspect]
     Indication: SCHIZOPHRENIA
     Dosage: SEE IMAGE
     Route: 048
     Dates: start: 19991201, end: 20050701
  3. CLOZAPINE [Suspect]
     Indication: SCHIZOPHRENIA
     Dosage: 100 MG; HS; PO
     Route: 048
     Dates: start: 19991201
  4. MORPHINE [Concomitant]
  5. PARACETAMOL /HYDROCODONE [Concomitant]
  6. BITARTRATE [Concomitant]
  7. ESCITALOPRAM OXALATE [Concomitant]
  8. LANSOPRAZOLE [Concomitant]
  9. PARACETAMOL [Concomitant]
  10. IPRATROPIUM BROMIDE/SALBUTAMOL SULFATE [Concomitant]

REACTIONS (1)
  - DEATH [None]
